FAERS Safety Report 5772913-X (Version None)
Quarter: 2008Q2

REPORT INFORMATION
  Report Type: 
  Country: None (occurrence: None)
  Receive Date: 20080613
  Receipt Date: 20080610
  Transmission Date: 20081010
  Serious: Yes (Hospitalization, Other)
  Sender: FDA-Public Use
  Company Number: US-MERCK-0705USA02852

PATIENT
  Age: 66 Year
  Sex: Male
  Weight: 82 kg

DRUGS (3)
  1. FOSAMAX [Suspect]
     Indication: OSTEOPOROSIS
     Route: 048
     Dates: start: 20011217
  2. FOSAMAX [Suspect]
     Indication: OSTEOPENIA
     Route: 048
     Dates: start: 20011217
  3. ANDROGEL [Concomitant]
     Indication: BLOOD TESTOSTERONE
     Route: 065
     Dates: start: 19900101

REACTIONS (35)
  - ACUTE CORONARY SYNDROME [None]
  - ADVERSE DRUG REACTION [None]
  - ANXIETY DISORDER [None]
  - ASTHMA [None]
  - BENIGN PROSTATIC HYPERPLASIA [None]
  - BLOOD CHOLESTEROL INCREASED [None]
  - CANDIDIASIS [None]
  - CHEST PAIN [None]
  - CHRONIC OBSTRUCTIVE PULMONARY DISEASE [None]
  - COUGH [None]
  - DIABETES MELLITUS [None]
  - ERECTILE DYSFUNCTION [None]
  - GASTROOESOPHAGEAL REFLUX DISEASE [None]
  - HEPATIC ENZYME INCREASED [None]
  - HYPERTENSION [None]
  - HYPOAESTHESIA ORAL [None]
  - HYPOPNOEA [None]
  - HYPOXIA [None]
  - INFLAMMATION [None]
  - JOINT RANGE OF MOTION DECREASED [None]
  - LYMPHADENOPATHY [None]
  - MUSCLE SPASMS [None]
  - MUSCULOSKELETAL CHEST PAIN [None]
  - OBESITY [None]
  - ORAL PAIN [None]
  - PAIN IN JAW [None]
  - PERIODONTAL DISEASE [None]
  - RESIDUAL URINE [None]
  - SINUSITIS [None]
  - SLEEP APNOEA SYNDROME [None]
  - STATUS ASTHMATICUS [None]
  - SWELLING [None]
  - TOOTH LOSS [None]
  - TREMOR [None]
  - TRISMUS [None]
